FAERS Safety Report 9669167 (Version 6)
Quarter: 2014Q2

REPORT INFORMATION
  Report Type: Report from Study
  Country: FR (occurrence: FR)
  Receive Date: 20131105
  Receipt Date: 20140611
  Transmission Date: 20141212
  Serious: Yes (Death, Life-Threatening, Hospitalization)
  Sender: FDA-Public Use
  Company Number: FR-SA-2013SA111951

PATIENT
  Age: 13 Year
  Sex: Female
  Weight: 48 kg

DRUGS (11)
  1. EVOLTRA [Suspect]
     Indication: ACUTE LYMPHOCYTIC LEUKAEMIA RECURRENT
     Dosage: ROUTE OF ADMINISTRATION: PERFUSION
     Route: 042
     Dates: start: 20120724
  2. EVOLTRA [Suspect]
     Indication: ACUTE LYMPHOCYTIC LEUKAEMIA RECURRENT
     Dosage: ROUTE OF ADMINISTRATION: PERFUSION
     Route: 042
     Dates: start: 20120911, end: 20120915
  3. ETOPOSIDE [Concomitant]
     Indication: ACUTE LYMPHOCYTIC LEUKAEMIA
     Route: 065
     Dates: start: 20120911, end: 20120915
  4. CYCLOPHOSPHAMIDE [Concomitant]
     Indication: ACUTE LYMPHOCYTIC LEUKAEMIA
     Route: 065
     Dates: start: 20120911, end: 20120915
  5. DEXAMETHASONE [Concomitant]
     Route: 048
     Dates: end: 20120928
  6. THIOGUANINE [Concomitant]
     Route: 048
     Dates: end: 20120928
  7. VINDESINE [Concomitant]
     Route: 042
     Dates: end: 20120928
  8. MESNA [Concomitant]
     Route: 042
     Dates: end: 20120928
  9. IFOSFAMIDE [Concomitant]
     Dates: end: 20120928
  10. METHOTREXATE [Concomitant]
  11. METHOTREXATE [Concomitant]
     Route: 037
     Dates: end: 20120928

REACTIONS (4)
  - Myocardial infarction [Fatal]
  - Cardiac failure [Fatal]
  - Pneumonia [Fatal]
  - Chest pain [Not Recovered/Not Resolved]
